FAERS Safety Report 7328600-X (Version None)
Quarter: 2011Q1

REPORT INFORMATION
  Report Type: 
  Country: None (occurrence: None)
  Receive Date: 20110225
  Receipt Date: 20110225
  Transmission Date: 20110831
  Serious: Yes (Disabling)
  Sender: FDA-Public Use
  Company Number: None

PATIENT
  Sex: Female
  Weight: 61.2356 kg

DRUGS (1)
  1. ANEFRIN [Suspect]
     Indication: NASAL CONGESTION
     Dosage: 3 SPRAYS ONCE A DAY NASAL
     Route: 045
     Dates: start: 20110221, end: 20110223

REACTIONS (1)
  - ANOSMIA [None]
